FAERS Safety Report 16580459 (Version 3)
Quarter: 2019Q3

REPORT INFORMATION
  Report Type: Report from Study
  Country: CA (occurrence: CA)
  Receive Date: 20190716
  Receipt Date: 20190827
  Transmission Date: 20191004
  Serious: Yes (Hospitalization, Other)
  Sender: FDA-Public Use
  Company Number: PHHY2017CA068281

PATIENT
  Age: 68 Year
  Sex: Female

DRUGS (12)
  1. PROPRANOLOL [Concomitant]
     Active Substance: PROPRANOLOL HYDROCHLORIDE
     Indication: PRODUCT USED FOR UNKNOWN INDICATION
     Route: 065
  2. MORPHINE [Suspect]
     Active Substance: MORPHINE
     Indication: PRODUCT USED FOR UNKNOWN INDICATION
     Dosage: UNK, FOR 3 DAYS
     Route: 065
  3. SANDOSTATIN [Suspect]
     Active Substance: OCTREOTIDE ACETATE
     Indication: CARCINOID SYNDROME
     Dosage: 50 UG, ONCE/SINGLE
     Route: 058
     Dates: start: 20170502, end: 20170502
  4. SANDOSTATIN LAR DEPOT [Suspect]
     Active Substance: OCTREOTIDE ACETATE
     Dosage: 30 MG, QMO (EVERY 4 WEEKS)
     Route: 030
  5. SANDOSTATIN LAR DEPOT [Suspect]
     Active Substance: OCTREOTIDE ACETATE
     Indication: CARCINOID TUMOUR
     Dosage: 20 MG, QMO (EVERY 4 WEEKS)
     Route: 030
     Dates: start: 20170505
  6. GAVISCON [Concomitant]
     Active Substance: ALUMINUM HYDROXIDE\MAGNESIUM CARBONATE
     Indication: PRODUCT USED FOR UNKNOWN INDICATION
     Route: 065
  7. TUSSIONEX PENNKINETIC [Concomitant]
     Active Substance: CHLORPHENIRAMINE\HYDROCODONE
     Indication: PRODUCT USED FOR UNKNOWN INDICATION
     Dosage: 5 ML, UNK (AT BEDTIME)
     Route: 065
  8. SALBUTAMOL HFA [Concomitant]
     Active Substance: ALBUTEROL
     Indication: PRODUCT USED FOR UNKNOWN INDICATION
     Dosage: 100 UNK, (100MCG 2 PUFFS EVERY 4 HOURS AS NEEDED)
     Route: 065
  9. TYLENOL [Concomitant]
     Active Substance: ACETAMINOPHEN
     Indication: DISCOMFORT
  10. TYLENOL [Concomitant]
     Active Substance: ACETAMINOPHEN
     Indication: ABDOMINAL PAIN LOWER
     Dosage: 2 DF (PILLS), AT BEDTIME
     Route: 065
  11. FLONASE [Concomitant]
     Active Substance: FLUTICASONE PROPIONATE
     Indication: PRODUCT USED FOR UNKNOWN INDICATION
     Dosage: 50 (MCG 2 SPRAYS DAILY)
     Route: 065
  12. AMOXICILLIN + CLAVULANIC ACID [Concomitant]
     Active Substance: AMOXICILLIN\CLAVULANIC ACID
     Indication: PRODUCT USED FOR UNKNOWN INDICATION
     Dosage: 875 OT, BID (EVERY 12 HOURS)
     Route: 065

REACTIONS (29)
  - Vomiting [Recovering/Resolving]
  - Nervousness [Unknown]
  - Abdominal discomfort [Recovered/Resolved]
  - Fluid retention [Unknown]
  - Blood pressure increased [Unknown]
  - Nausea [Not Recovered/Not Resolved]
  - Crying [Unknown]
  - Drug hypersensitivity [Recovering/Resolving]
  - Withdrawal syndrome [Recovering/Resolving]
  - Carcinoid tumour [Unknown]
  - Malignant neoplasm progression [Unknown]
  - Pallor [Recovered/Resolved]
  - Heart rate irregular [Unknown]
  - Weight increased [Unknown]
  - Pulmonary oedema [Unknown]
  - Dyspnoea [Recovered/Resolved]
  - Swelling face [Recovered/Resolved]
  - Vital functions abnormal [Unknown]
  - Depression [Unknown]
  - Respiratory disorder [Unknown]
  - Obstructive airways disorder [Recovered/Resolved]
  - Pain [Recovered/Resolved]
  - Abdominal hernia [Not Recovered/Not Resolved]
  - Abdominal pain upper [Recovered/Resolved]
  - Abdominal distension [Unknown]
  - Dyspepsia [Unknown]
  - Dizziness [Recovering/Resolving]
  - Discomfort [Recovered/Resolved]
  - Abdominal pain lower [Not Recovered/Not Resolved]

NARRATIVE: CASE EVENT DATE: 20170507
